FAERS Safety Report 6559559-0 (Version None)
Quarter: 2010Q1

REPORT INFORMATION
  Report Type: 
  Country: None (occurrence: None)
  Receive Date: 20100129
  Receipt Date: 20090904
  Transmission Date: 20100710
  Serious: No
  Sender: FDA-Public Use
  Company Number: US-ABBOTT-09P-163-0595388-00

PATIENT
  Sex: Female
  Weight: 63.56 kg

DRUGS (1)
  1. HUMIRA [Suspect]
     Indication: CROHN'S DISEASE
     Dosage: 160MG; DAY 1
     Dates: start: 20090902

REACTIONS (5)
  - COUGH [None]
  - NASOPHARYNGITIS [None]
  - RESPIRATORY TRACT CONGESTION [None]
  - SINUSITIS [None]
  - SPUTUM DISCOLOURED [None]
